FAERS Safety Report 4866634-5 (Version None)
Quarter: 2005Q4

REPORT INFORMATION
  Report Type: 
  Country: None (occurrence: None)
  Receive Date: 20051227
  Receipt Date: 20051221
  Transmission Date: 20060501
  Serious: Yes (Other)
  Sender: FDA-Public Use
  Company Number: US-JNJFOC-20051104974

PATIENT
  Sex: Female
  Weight: 49.22 kg

DRUGS (6)
  1. RAZADYNE ER [Suspect]
     Route: 048
  2. REMINYL [Suspect]
     Route: 048
  3. REMINYL [Suspect]
     Route: 048
  4. REMINYL [Suspect]
     Route: 048
  5. COUMADIN [Concomitant]
  6. SOTALOL HCL [Concomitant]

REACTIONS (9)
  - ASTHENIA [None]
  - DIFFICULTY IN WALKING [None]
  - DIZZINESS [None]
  - DRUG ADMINISTRATION ERROR [None]
  - HYPOTENSION [None]
  - LETHARGY [None]
  - NAUSEA [None]
  - OVERDOSE [None]
  - PROTHROMBIN TIME ABNORMAL [None]
